FAERS Safety Report 18486481 (Version 1)
Quarter: 2020Q4

REPORT INFORMATION
  Report Type: Spontaneous
  Country: US (occurrence: US)
  Receive Date: 20201110
  Receipt Date: 20201110
  Transmission Date: 20210114
  Serious: Yes (Death)
  Sender: FDA-Public Use
  Company Number: None

PATIENT
  Sex: Female

DRUGS (5)
  1. ONDANSETRON TAB 8MG [Concomitant]
     Active Substance: ONDANSETRON
  2. XALKORI [Suspect]
     Active Substance: CRIZOTINIB
     Indication: LUNG NEOPLASM MALIGNANT
     Route: 048
     Dates: start: 20201103
  3. GABAPENTIN SOL 250/5ML [Concomitant]
  4. HYDROMORPHONE TAB 2MG [Concomitant]
  5. GABAPENTIN CAP 300MG [Concomitant]
     Active Substance: GABAPENTIN

REACTIONS (1)
  - Death [None]
